FAERS Safety Report 9823957 (Version 3)
Quarter: 2015Q3

REPORT INFORMATION
  Report Type: Spontaneous
  Country: US (occurrence: US)
  Receive Date: 20140116
  Receipt Date: 20150807
  Transmission Date: 20151125
  Serious: No
  Sender: FDA-Public Use
  Company Number: US-GILEAD-2011-0037766

PATIENT
  Age: 63 Year
  Sex: Female

DRUGS (2)
  1. REVATIO [Concomitant]
     Active Substance: SILDENAFIL CITRATE
  2. LETAIRIS [Suspect]
     Active Substance: AMBRISENTAN
     Indication: PRODUCT USED FOR UNKNOWN INDICATION
     Route: 048
     Dates: start: 20090702

REACTIONS (8)
  - Nasal congestion [Unknown]
  - Epistaxis [Unknown]
  - Weight increased [Not Recovered/Not Resolved]
  - Overweight [Unknown]
  - Flatulence [Unknown]
  - Abdominal distension [Unknown]
  - Sneezing [Unknown]
  - Nasal discomfort [Unknown]

NARRATIVE: CASE EVENT DATE: 20100901
